FAERS Safety Report 8757961 (Version 2)
Quarter: 2012Q4

REPORT INFORMATION
  Report Type: 
  Country: US (occurrence: US)
  Receive Date: 20120828
  Receipt Date: 20120910
  Transmission Date: 20130627
  Serious: No
  Sender: FDA-Public Use
  Company Number: US-PFIZER INC-2012208012

PATIENT
  Age: 19 Year
  Sex: Female

DRUGS (2)
  1. LYRICA [Suspect]
     Dosage: 50 mg, 1x/day
     Route: 048
  2. MAXALT [Concomitant]
     Dosage: 10 mg, UNK

REACTIONS (1)
  - Fibromyalgia [Unknown]
